FAERS Safety Report 5938542-X (Version None)
Quarter: 2008Q4

REPORT INFORMATION
  Report Type: 
  Country: None (occurrence: None)
  Receive Date: 20081103
  Receipt Date: 20081027
  Transmission Date: 20090506
  Serious: Yes (Other)
  Sender: FDA-Public Use
  Company Number: PHEH2008US09263

PATIENT
  Sex: Male
  Weight: 143 kg

DRUGS (3)
  1. TEKTURNA [Suspect]
     Dosage: 150 MG, UNK
     Dates: start: 20080918, end: 20081010
  2. LOTREL [Suspect]
     Dosage: 5/20
  3. ATENOLOL [Suspect]
     Dosage: 100 MG, UNK

REACTIONS (1)
  - BLOOD PRESSURE SYSTOLIC INCREASED [None]
